FAERS Safety Report 9686985 (Version 1)
Quarter: 2013Q4

REPORT INFORMATION
  Report Type: Spontaneous
  Country: IN (occurrence: IN)
  Receive Date: 20131113
  Receipt Date: 20131113
  Transmission Date: 20140711
  Serious: Yes (Death)
  Sender: FDA-Public Use
  Company Number: PHHY2013IN128538

PATIENT
  Sex: 0

DRUGS (2)
  1. ALENDRONATE [Suspect]
     Indication: CALCINOSIS
  2. PREDNISOLONE [Concomitant]
     Dosage: 1 MG/KG, PER DAY

REACTIONS (2)
  - Death [Fatal]
  - Drug ineffective [Unknown]
